FAERS Safety Report 23217318 (Version 2)
Quarter: 2023Q4

REPORT INFORMATION
  Report Type: Report from Study
  Country: US (occurrence: US)
  Receive Date: 20231122
  Receipt Date: 20231128
  Transmission Date: 20240109
  Serious: Yes (Other)
  Sender: FDA-Public Use
  Company Number: US-ABBVIE-5499098

PATIENT
  Sex: Female

DRUGS (3)
  1. SKYRIZI [Suspect]
     Active Substance: RISANKIZUMAB-RZAA
     Indication: Psoriasis
     Dosage: FORM STRENGTH 150 MG
     Route: 058
     Dates: start: 202203, end: 202303
  2. SKYRIZI [Suspect]
     Active Substance: RISANKIZUMAB-RZAA
     Indication: Crohn^s disease
     Dosage: FORM STRENGTH 360 MG, DISCONTINUED IN 2023
     Route: 042
     Dates: start: 202303
  3. SKYRIZI [Suspect]
     Active Substance: RISANKIZUMAB-RZAA
     Indication: Psoriasis
     Dosage: FORM STRENGTH 360 MG
     Route: 042
     Dates: start: 20230502

REACTIONS (5)
  - Surgery [Unknown]
  - Faeces discoloured [Unknown]
  - Diarrhoea [Recovered/Resolved]
  - Frequent bowel movements [Recovered/Resolved]
  - Therapeutic product effect decreased [Unknown]

NARRATIVE: CASE EVENT DATE: 20230101
